FAERS Safety Report 11965522 (Version 1)
Quarter: 2016Q1

REPORT INFORMATION
  Report Type: Spontaneous
  Country: US (occurrence: None)
  Receive Date: 20160125
  Receipt Date: 20160125
  Transmission Date: 20160526
  Serious: Yes (Life-Threatening, Other)
  Sender: FDA-Public Use
  Company Number: None

PATIENT
  Age: 68 Year
  Sex: Male
  Weight: 77.11 kg

DRUGS (5)
  1. HALOBETASOL PROPIATE 0.05% OINTMENT [Concomitant]
  2. OTEZLA [Suspect]
     Active Substance: APREMILAST
     Indication: PSORIASIS
     Dosage: 1 CAPSULE AM; 2 CAPSULES PM
     Route: 048
     Dates: start: 20141118, end: 20151120
  3. HYDROXYZINE [Concomitant]
     Active Substance: HYDROXYZINE\HYDROXYZINE HYDROCHLORIDE
  4. ASPIRIN. [Concomitant]
     Active Substance: ASPIRIN
  5. DOXEPIN CREAM [Concomitant]

REACTIONS (8)
  - Pyrexia [None]
  - Chills [None]
  - Erythema [None]
  - Pruritus [None]
  - Rash pustular [None]
  - Malaise [None]
  - Drug eruption [None]
  - Scab [None]

NARRATIVE: CASE EVENT DATE: 20151121
